FAERS Safety Report 4954605-X (Version None)
Quarter: 2006Q1

REPORT INFORMATION
  Report Type: 
  Country: None (occurrence: None)
  Receive Date: 20060327
  Receipt Date: 20060316
  Transmission Date: 20060701
  Serious: Yes (Other)
  Sender: FDA-Public Use
  Company Number: PHHO2006IN04365

PATIENT
  Age: 58 Year
  Sex: Male
  Weight: 59 kg

DRUGS (1)
  1. GLEEVEC [Suspect]
     Indication: CHRONIC MYELOID LEUKAEMIA
     Dosage: 400 MG, QD
     Route: 048
     Dates: start: 20051115, end: 20060216

REACTIONS (4)
  - DERMATITIS EXFOLIATIVE [None]
  - NEURODERMATITIS [None]
  - RASH ERYTHEMATOUS [None]
  - SKIN EXFOLIATION [None]
